FAERS Safety Report 9193076 (Version 2)
Quarter: 2013Q2

REPORT INFORMATION
  Report Type: Report from Study
  Country: US (occurrence: US)
  Receive Date: 20130327
  Receipt Date: 20130503
  Transmission Date: 20140414
  Serious: Yes (Hospitalization, Other)
  Sender: FDA-Public Use
  Company Number: US-ASTELLAS-2013US003220

PATIENT
  Sex: Female

DRUGS (1)
  1. ERLOTINIB TABLET [Suspect]
     Indication: LUNG CARCINOMA CELL TYPE UNSPECIFIED STAGE 0
     Dosage: 25 MG, UID/QD
     Route: 048
     Dates: start: 20121213

REACTIONS (5)
  - Incorrect dose administered [Unknown]
  - Hiatus hernia [Unknown]
  - Back pain [Unknown]
  - Anxiety [Unknown]
  - Metastases to bone [Unknown]
